FAERS Safety Report 5053575-6 (Version None)
Quarter: 2006Q3

REPORT INFORMATION
  Report Type: 
  Country: None (occurrence: None)
  Receive Date: 20060718
  Receipt Date: 20060207
  Transmission Date: 20061208
  Serious: Yes (Hospitalization)
  Sender: FDA-Public Use
  Company Number: US-BRISTOL-MYERS SQUIBB COMPANY-13275250

PATIENT
  Age: 67 Year
  Sex: Female
  Weight: 72 kg

DRUGS (12)
  1. ERBITUX [Suspect]
     Indication: BREAST CANCER METASTATIC
     Dates: start: 20060130, end: 20060130
  2. CARBOPLATIN [Suspect]
     Indication: BREAST CANCER METASTATIC
     Dates: start: 20060124, end: 20060124
  3. IRINOTECAN [Suspect]
     Indication: BREAST CANCER METASTATIC
     Dates: start: 20060124, end: 20060124
  4. VERAPAMIL [Concomitant]
     Indication: HYPERTENSION
     Route: 048
     Dates: start: 19900101
  5. OS-CAL [Concomitant]
     Indication: MINERAL SUPPLEMENTATION
     Route: 048
     Dates: start: 20010101
  6. CLEOCIN GEL [Concomitant]
     Indication: DERMATITIS ACNEIFORM
     Route: 061
     Dates: start: 20060123
  7. IMODIUM [Concomitant]
     Indication: DIARRHOEA
     Dates: start: 20050131
  8. OPIUM TINCTURE [Concomitant]
     Indication: DIARRHOEA
     Dates: start: 20060131
  9. COMPAZINE [Concomitant]
     Indication: NAUSEA
     Route: 048
     Dates: start: 20060131
  10. LEVAQUIN [Concomitant]
     Indication: UPPER RESPIRATORY TRACT INFECTION
     Route: 048
     Dates: start: 20060202
  11. VERAPAMIL [Concomitant]
     Route: 048
     Dates: start: 19900101
  12. ASPIRIN [Concomitant]

REACTIONS (1)
  - UPPER RESPIRATORY TRACT INFECTION [None]
